FAERS Safety Report 4274038-1 (Version None)
Quarter: 2004Q1

REPORT INFORMATION
  Report Type: 
  Country: None (occurrence: None)
  Receive Date: 20040115
  Receipt Date: 20040107
  Transmission Date: 20041129
  Serious: Yes (Hospitalization, Other)
  Sender: FDA-Public Use
  Company Number: 2004001394

PATIENT
  Age: 63 Year
  Sex: Male
  Weight: 95.2554 kg

DRUGS (10)
  1. LIPITOR [Suspect]
     Indication: BLOOD CHOLESTEROL
     Dosage: 20 MG (DAILY), ORAL
     Route: 048
     Dates: start: 20010101
  2. MYCOPHENOLATE MOFETIL (MYCOPHENOLATE MOFETIL) [Concomitant]
  3. TACROLIMUS (TACROLIMUS) [Concomitant]
  4. PREDNISONE [Concomitant]
  5. MAGNESIUM OXIDE (MAGNESIUM OXIDE) [Concomitant]
  6. ESOMEPRAZOLE (ESOMEPRAZOLE) [Concomitant]
  7. INSULIN [Concomitant]
  8. AMLODIPINE BESYLATE [Concomitant]
  9. METOPROLOL SUCCINATE [Concomitant]
  10. FUROSEMIDE [Concomitant]

REACTIONS (6)
  - ATRIAL FIBRILLATION [None]
  - CATHETERISATION CARDIAC [None]
  - INCISIONAL HERNIA [None]
  - MUSCLE RUPTURE [None]
  - POST PROCEDURAL COMPLICATION [None]
  - RENAL TRANSPLANT [None]
